FAERS Safety Report 11933054 (Version 2)
Quarter: 2016Q1

REPORT INFORMATION
  Report Type: Spontaneous
  Country: GB (occurrence: GB)
  Receive Date: 20160121
  Receipt Date: 20160129
  Transmission Date: 20160526
  Serious: Yes (Death, Other)
  Sender: FDA-Public Use
  Company Number: GB-AMGEN-GBRSP2016005073

PATIENT
  Age: 76 Year
  Sex: Male

DRUGS (2)
  1. ARANESP [Suspect]
     Active Substance: DARBEPOETIN ALFA
     Indication: PRODUCT USED FOR UNKNOWN INDICATION
     Dosage: 50 MUG (0.5ML), UNK
     Route: 065
  2. RAPAMUNE [Concomitant]
     Active Substance: SIROLIMUS
     Dosage: 2 MG, UNK
     Route: 048

REACTIONS (1)
  - Death [Fatal]
